FAERS Safety Report 13400260 (Version 2)
Quarter: 2017Q2

REPORT INFORMATION
  Report Type: Spontaneous
  Country: US (occurrence: US)
  Receive Date: 20170404
  Receipt Date: 20170615
  Transmission Date: 20170830
  Serious: No
  Sender: FDA-Public Use
  Company Number: US-LEO PHARMA-300518

PATIENT
  Sex: Female

DRUGS (1)
  1. PICATO [Suspect]
     Active Substance: INGENOL MEBUTATE
     Indication: ACTINIC KERATOSIS
     Route: 061

REACTIONS (3)
  - Application site dryness [Recovered/Resolved]
  - Actinic keratosis [Not Recovered/Not Resolved]
  - Application site exfoliation [Recovered/Resolved]
